FAERS Safety Report 14775465 (Version 1)
Quarter: 2018Q2

REPORT INFORMATION
  Report Type: Spontaneous
  Country: ES (occurrence: ES)
  Receive Date: 20180418
  Receipt Date: 20180418
  Transmission Date: 20180711
  Serious: Yes (Other)
  Sender: FDA-Public Use
  Company Number: ES-TEVA-2018-ES-882503

PATIENT
  Age: 62 Year
  Sex: Female

DRUGS (2)
  1. CICLOSPORINA (406A) [Suspect]
     Active Substance: CYCLOSPORINE
     Route: 048
     Dates: start: 201505
  2. TOCTINO 30 MG CAPSULAS BLANDAS , 30 C?PSULAS [Suspect]
     Active Substance: ALITRETINOIN
     Route: 048
     Dates: start: 201709

REACTIONS (2)
  - Hypertriglyceridaemia [Unknown]
  - Hyperlipidaemia [Unknown]

NARRATIVE: CASE EVENT DATE: 201711
